FAERS Safety Report 8348231-2 (Version None)
Quarter: 2012Q2

REPORT INFORMATION
  Report Type: 
  Country: None (occurrence: None)
  Receive Date: 20120509
  Receipt Date: 20120504
  Transmission Date: 20120825
  Serious: Yes (Other)
  Sender: FDA-Public Use
  Company Number: PHHY2012JP037454

PATIENT
  Age: 25 Year
  Sex: Female

DRUGS (1)
  1. RISPERIDONE [Suspect]
     Indication: SCHIZOPHRENIA
     Dosage: 3 MG, PER DAY

REACTIONS (3)
  - DYSKINESIA [None]
  - JOINT DISLOCATION [None]
  - OROMANDIBULAR DYSTONIA [None]
